FAERS Safety Report 6620462-9 (Version None)
Quarter: 2010Q1

REPORT INFORMATION
  Report Type: 
  Country: None (occurrence: None)
  Receive Date: 20100309
  Receipt Date: 20100301
  Transmission Date: 20100710
  Serious: Yes (Other)
  Sender: FDA-Public Use
  Company Number: GXKR2010BR02443

PATIENT
  Age: 55 Year
  Sex: Female

DRUGS (5)
  1. FLUOROURACIL [Suspect]
     Indication: COLORECTAL CANCER
     Dosage: 400 MG/M2, UNK
     Route: 040
  2. FLUOROURACIL [Suspect]
     Dosage: 2400 MG/M2, UNK
     Route: 042
  3. FOLINIC ACID [Concomitant]
     Indication: COLORECTAL CANCER
     Dosage: 400 MG/M2, UNK
     Route: 042
  4. OXALIPLATIN [Concomitant]
     Indication: COLORECTAL CANCER
     Dosage: 85 MG/M2, UNK
     Route: 042
  5. WARFARIN SODIUM [Concomitant]
     Indication: THROMBOSIS
     Route: 065

REACTIONS (3)
  - ACUTE CORONARY SYNDROME [None]
  - CHEST PAIN [None]
  - MITRAL VALVE INCOMPETENCE [None]
